FAERS Safety Report 5430976-5 (Version None)
Quarter: 2007Q3

REPORT INFORMATION
  Report Type: 
  Country: None (occurrence: None)
  Receive Date: 20070830
  Receipt Date: 20070827
  Transmission Date: 20080115
  Serious: Yes (Other)
  Sender: FDA-Public Use
  Company Number: A0676667A

PATIENT
  Age: 28 Year
  Sex: Female

DRUGS (2)
  1. PAXIL CR [Suspect]
     Dosage: 12.5MG SINGLE DOSE
     Route: 048
     Dates: start: 20070822, end: 20070822
  2. SYNTHROID [Concomitant]

REACTIONS (4)
  - ANGINA PECTORIS [None]
  - HEART RATE INCREASED [None]
  - SEROTONIN SYNDROME [None]
  - TREMOR [None]
